FAERS Safety Report 20597789 (Version 5)
Quarter: 2024Q2

REPORT INFORMATION
  Report Type: Spontaneous
  Country: US (occurrence: US)
  Receive Date: 20220315
  Receipt Date: 20240403
  Transmission Date: 20240716
  Serious: Yes (Hospitalization, Other)
  Sender: FDA-Public Use
  Company Number: US-PFIZER INC-202101103068

PATIENT
  Age: 67 Year
  Sex: Female
  Weight: 58 kg

DRUGS (1)
  1. XELJANZ XR [Suspect]
     Active Substance: TOFACITINIB CITRATE
     Indication: Rheumatoid arthritis
     Dosage: 11 MG/ DAY
     Route: 048
     Dates: start: 2019, end: 202305

REACTIONS (5)
  - Pneumonia [Recovered/Resolved]
  - Sepsis [Recovered/Resolved]
  - Renal impairment [Unknown]
  - Depression [Unknown]
  - Bone density abnormal [Unknown]

NARRATIVE: CASE EVENT DATE: 20230501
